FAERS Safety Report 23292375 (Version 1)
Quarter: 2023Q4

REPORT INFORMATION
  Report Type: Spontaneous
  Country: JP (occurrence: JP)
  Receive Date: 20231213
  Receipt Date: 20231213
  Transmission Date: 20240109
  Serious: Yes (Death, Hospitalization)
  Sender: FDA-Public Use
  Company Number: JP-PFIZER INC-PV202300197858

PATIENT
  Age: 92 Year
  Sex: Female

DRUGS (1)
  1. METHOTREXATE SODIUM [Suspect]
     Active Substance: METHOTREXATE SODIUM
     Indication: Rheumatoid arthritis

REACTIONS (6)
  - Lymphoproliferative disorder [Fatal]
  - Respiratory failure [Fatal]
  - Circulatory collapse [Fatal]
  - Epstein-Barr virus infection [Unknown]
  - Mitral valve disease [Unknown]
  - Cerebral infarction [Unknown]
